FAERS Safety Report 9349965 (Version 1)
Quarter: 2013Q2

REPORT INFORMATION
  Report Type: Report from Study
  Country: DE (occurrence: DE)
  Receive Date: 20130614
  Receipt Date: 20130614
  Transmission Date: 20140414
  Serious: Yes (Hospitalization)
  Sender: FDA-Public Use
  Company Number: PHHY2013DE059370

PATIENT
  Sex: Female

DRUGS (2)
  1. FTY 720 [Suspect]
     Indication: MULTIPLE SCLEROSIS
     Dosage: 0.5 MG, QD
     Route: 048
     Dates: start: 20110525
  2. THYRONAJOD [Concomitant]
     Dosage: 75 UG, QD
     Dates: start: 200509

REACTIONS (1)
  - Myoclonus [Recovered/Resolved]
